FAERS Safety Report 6901106-5 (Version None)
Quarter: 2010Q3

REPORT INFORMATION
  Report Type: 
  Country: None (occurrence: None)
  Receive Date: 20100803
  Receipt Date: 20100729
  Transmission Date: 20110219
  Serious: Yes (Hospitalization, Other)
  Sender: FDA-Public Use
  Company Number: RU-ROXANE LABORATORIES, INC.-2010-RO-00942RO

PATIENT
  Age: 26 Year
  Sex: Male
  Weight: 74 kg

DRUGS (3)
  1. DIGOXIN [Suspect]
     Dates: start: 20030101
  2. WARFARIN [Suspect]
  3. CONCOR [Suspect]

REACTIONS (10)
  - DRUG TOXICITY [None]
  - DUODENAL ULCER [None]
  - DYSARTHRIA [None]
  - GASTRITIS EROSIVE [None]
  - GASTRODUODENITIS [None]
  - HELICOBACTER TEST POSITIVE [None]
  - HEMIPARESIS [None]
  - HEPATIC FIBROSIS [None]
  - ISCHAEMIC STROKE [None]
  - PSYCHOTIC DISORDER DUE TO A GENERAL MEDICAL CONDITION [None]
